FAERS Safety Report 15714739 (Version 1)
Quarter: 2018Q4

REPORT INFORMATION
  Report Type: Spontaneous
  Country: US (occurrence: US)
  Receive Date: 20181212
  Receipt Date: 20181212
  Transmission Date: 20190205
  Serious: No
  Sender: FDA-Public Use
  Company Number: US-PFIZER INC-2018510440

PATIENT
  Age: 68 Year
  Sex: Female

DRUGS (10)
  1. BIAXIN [Suspect]
     Active Substance: CLARITHROMYCIN
     Dosage: UNK
  2. SULFAMETHOXAZOLE [Suspect]
     Active Substance: SULFAMETHOXAZOLE
     Dosage: UNK
  3. KEFLEX [Suspect]
     Active Substance: CEPHALEXIN
     Dosage: UNK
  4. METROGEL [Suspect]
     Active Substance: METRONIDAZOLE
     Dosage: UNK
  5. LEVAQUIN [Suspect]
     Active Substance: LEVOFLOXACIN
     Dosage: UNK
  6. OXYCODONE [Suspect]
     Active Substance: OXYCODONE
     Dosage: UNK
  7. DOXYCYCLINE HYCLATE. [Suspect]
     Active Substance: DOXYCYCLINE HYCLATE
     Dosage: UNK
  8. AUGMENTIN TRIO [Suspect]
     Active Substance: AMOXICILLIN\CLAVULANATE POTASSIUM
     Dosage: UNK
  9. HYDROCODONE [Suspect]
     Active Substance: HYDROCODONE
     Dosage: UNK
  10. KETEK [Suspect]
     Active Substance: TELITHROMYCIN
     Dosage: UNK

REACTIONS (1)
  - Drug hypersensitivity [Unknown]
